FAERS Safety Report 23094178 (Version 1)
Quarter: 2023Q4

REPORT INFORMATION
  Report Type: Report from Study
  Country: CH (occurrence: CH)
  Receive Date: 20231023
  Receipt Date: 20231023
  Transmission Date: 20240109
  Serious: Yes (Hospitalization, Other)
  Sender: FDA-Public Use
  Company Number: CH-ABBVIE-5410857

PATIENT
  Age: 66 Year
  Sex: Male

DRUGS (5)
  1. CARBIDOPA\LEVODOPA [Suspect]
     Active Substance: CARBIDOPA\LEVODOPA
     Indication: Parkinson^s disease
     Dosage: MD 2.7ML, CRD 1.1ML/H, ED 0.5ML,?FREQUENCY TEXT: 16H THERAPY
     Route: 050
     Dates: start: 20230828, end: 20230830
  2. CARBIDOPA\LEVODOPA [Suspect]
     Active Substance: CARBIDOPA\LEVODOPA
     Dosage: MD 2.5ML, CRD 0.8ML/H, ED 0.5ML,?FREQUENCY TEXT: 16H THERAPY
     Route: 050
     Dates: start: 20230822, end: 20230824
  3. CARBIDOPA\LEVODOPA [Suspect]
     Active Substance: CARBIDOPA\LEVODOPA
     Dosage: MD 5.7ML, CRD 1.2ML/H, ED 0.5ML,?FREQUENCY TEXT: 16H THERAPY
     Route: 050
     Dates: start: 20230913
  4. CARBIDOPA\LEVODOPA [Suspect]
     Active Substance: CARBIDOPA\LEVODOPA
     Dosage: MD 2.6ML, CRD 1.0ML/H, ED 0.5ML,?FREQUENCY TEXT: 16H THERAPY
     Route: 050
     Dates: start: 20230824, end: 20230828
  5. CARBIDOPA\LEVODOPA [Suspect]
     Active Substance: CARBIDOPA\LEVODOPA
     Dosage: MD 2.6ML, CRD 1.1ML/H, ED 0.5ML,?FREQUENCY TEXT: 16H THERAPY
     Route: 050
     Dates: start: 20230830, end: 20230913

REACTIONS (5)
  - Device dislocation [Recovered/Resolved]
  - Hypotension [Unknown]
  - Abdominal pain [Recovered/Resolved]
  - Stoma site haemorrhage [Unknown]
  - Gastrointestinal haemorrhage [Unknown]

NARRATIVE: CASE EVENT DATE: 20230901
